FAERS Safety Report 7723414-0 (Version None)
Quarter: 2011Q3

REPORT INFORMATION
  Report Type: 
  Country: None (occurrence: None)
  Receive Date: 20110901
  Receipt Date: 20110824
  Transmission Date: 20111222
  Serious: Yes (Other)
  Sender: FDA-Public Use
  Company Number: CH-SANOFI-AVENTIS-2011SA054881

PATIENT
  Sex: Female

DRUGS (6)
  1. LEVOTHYROXINE SODIUM [Concomitant]
     Route: 065
     Dates: end: 20110412
  2. REQUIP [Suspect]
     Route: 065
     Dates: end: 20110223
  3. XANAX [Suspect]
     Route: 065
     Dates: end: 20110223
  4. BEROCCA CALCIUM, MAGNESIUM + ZINC [Concomitant]
     Route: 065
     Dates: end: 20110412
  5. DEANXIT [Suspect]
     Route: 065
  6. ZOLPIDEM [Suspect]
     Route: 065

REACTIONS (2)
  - ABORTION MISSED [None]
  - MATERNAL EXPOSURE DURING PREGNANCY [None]
